FAERS Safety Report 4530622-9 (Version None)
Quarter: 2004Q4

REPORT INFORMATION
  Report Type: 
  Country: None (occurrence: None)
  Receive Date: 20041217
  Receipt Date: 20041217
  Transmission Date: 20050328
  Serious: Yes (Other)
  Sender: FDA-Public Use
  Company Number: None

PATIENT
  Sex: Male
  Weight: 102.5129 kg

DRUGS (7)
  1. ADVIL COLD AND SINUS [Suspect]
     Indication: DYSPNOEA
     Dates: start: 20041105, end: 20041109
  2. AVELOX [Concomitant]
     Indication: WHEEZING
  3. NORVASC [Concomitant]
  4. LOTENSIN [Concomitant]
  5. LIPITOR [Concomitant]
  6. FLOVENT [Concomitant]
  7. ALBUTEROL [Concomitant]

REACTIONS (4)
  - DIZZINESS [None]
  - FATIGUE [None]
  - PENILE SWELLING [None]
  - SWELLING FACE [None]
